FAERS Safety Report 8548895-4 (Version None)
Quarter: 2012Q3

REPORT INFORMATION
  Report Type: 
  Country: None (occurrence: None)
  Receive Date: 20120730
  Receipt Date: 20120725
  Transmission Date: 20120928
  Serious: Yes (Hospitalization)
  Sender: FDA-Public Use
  Company Number: PHHY2012BR056260

PATIENT
  Sex: Female

DRUGS (4)
  1. EXELON [Suspect]
     Indication: MEMORY IMPAIRMENT
     Dosage: 4.6 MG\24HRS, 9MG/5CM
     Route: 062
  2. NAPRIX D [Concomitant]
     Indication: HYPERTENSION
     Dosage: 1 DF, 12,5+5MG, 1 TABLET A DAY
     Route: 048
  3. QUETIAPINE [Concomitant]
     Indication: MEMORY IMPAIRMENT
     Dosage: 1 DF, HALF TABLET IN THE MORNING AND HALF TABLET AT NIGHT
  4. OXYBUTYNIN [Concomitant]
     Indication: CYSTITIS
     Dosage: 1 DF, 1 TABLET A DAY
     Route: 048

REACTIONS (4)
  - MALAISE [None]
  - FOOD AVERSION [None]
  - ABNORMAL BEHAVIOUR [None]
  - DEPRESSION [None]
